FAERS Safety Report 9970548 (Version 1)
Quarter: 2014Q1

REPORT INFORMATION
  Report Type: Report from Study
  Country: US (occurrence: US)
  Receive Date: 20140306
  Receipt Date: 20140306
  Transmission Date: 20141002
  Serious: No
  Sender: FDA-Public Use
  Company Number: US-ABBVIE-13P-163-1150752-00

PATIENT
  Age: 60 Year
  Sex: Male

DRUGS (17)
  1. HUMIRA [Suspect]
     Indication: PSORIATIC ARTHROPATHY
     Route: 058
     Dates: start: 20130922, end: 20130922
  2. HUMIRA [Suspect]
  3. INSULIN [Concomitant]
     Indication: DIABETES MELLITUS
     Dosage: TWO SHOTS IN THE EVENING
  4. METFORMIN [Concomitant]
     Indication: DIABETES MELLITUS
  5. GLIPIZIDE [Concomitant]
     Indication: DIABETES MELLITUS
  6. FLUOXETINE [Concomitant]
     Indication: DEPRESSION
     Dosage: 40 MG DAILY
  7. FLUOXETINE [Concomitant]
     Indication: ANXIETY
  8. LISINOPRIL [Concomitant]
     Indication: BLOOD PRESSURE
     Dosage: 5 MG DAILY
  9. ATORVASTATIN [Concomitant]
     Indication: BLOOD CHOLESTEROL
     Dosage: 80 MG DAILY
  10. CARVEDILOL [Concomitant]
     Indication: CARDIOVASCULAR EVENT PROPHYLAXIS
  11. CLOPIDOGREL [Concomitant]
     Indication: CORONARY ARTERIAL STENT INSERTION
     Dosage: 75 MG DAILY
  12. DOCUSATE SODIUM [Concomitant]
     Indication: CONSTIPATION
  13. FENOFIBRATE [Concomitant]
     Indication: BLOOD CHOLESTEROL
     Dosage: 160 MG DAILY
  14. ASPIRIN [Concomitant]
     Indication: PRODUCT USED FOR UNKNOWN INDICATION
     Dosage: 81 MG DAILY
  15. NITROGLYCERIN [Concomitant]
     Indication: CHEST PAIN
  16. METHOCARBAMOL [Concomitant]
     Indication: MUSCLE SPASMS
     Dosage: UP TO 3 TID
  17. NABUMETONE [Concomitant]
     Indication: PAIN
     Dosage: PRN

REACTIONS (2)
  - Injection site haemorrhage [Recovered/Resolved]
  - Chest pain [Recovered/Resolved]
